FAERS Safety Report 5264823-1 (Version None)
Quarter: 2007Q1

REPORT INFORMATION
  Report Type: 
  Country: None (occurrence: None)
  Receive Date: 20070314
  Receipt Date: 20070309
  Transmission Date: 20070707
  Serious: Yes (Other)
  Sender: FDA-Public Use
  Company Number: US-GLAXOSMITHKLINE-A0642638A

PATIENT
  Age: 49 Year
  Sex: Female

DRUGS (2)
  1. ZYBAN [Suspect]
     Dosage: 150MG PER DAY
     Route: 048
     Dates: start: 19990101, end: 20000101
  2. NO CONCURRENT MEDICATION [Concomitant]

REACTIONS (2)
  - BLINDNESS TRANSIENT [None]
  - DIZZINESS [None]
